FAERS Safety Report 5243350-1 (Version None)
Quarter: 2007Q1

REPORT INFORMATION
  Report Type: 
  Country: None (occurrence: None)
  Receive Date: 20061201
  Receipt Date: 20060907
  Transmission Date: 20070707
  Serious: No
  Sender: FDA-Public Use
  Company Number: 2006PV009737

PATIENT
  Age: 60 Year
  Sex: Female
  Weight: 110.2241 kg

DRUGS (8)
  1. BYETTA [Suspect]
     Indication: DIABETES MELLITUS NON-INSULIN-DEPENDENT
     Dosage: SEE IMAGE
     Route: 058
     Dates: start: 20060225, end: 20060501
  2. BYETTA [Suspect]
     Indication: DIABETES MELLITUS NON-INSULIN-DEPENDENT
     Dosage: SEE IMAGE
     Route: 058
     Dates: start: 20060501, end: 20060801
  3. BYETTA [Suspect]
     Indication: DIABETES MELLITUS NON-INSULIN-DEPENDENT
     Dosage: SEE IMAGE
     Route: 058
     Dates: start: 20060801
  4. BYETTA [Suspect]
  5. AMARYL [Concomitant]
  6. STARLIX [Concomitant]
  7. MICARDIS [Concomitant]
  8. AVANDIA [Concomitant]

REACTIONS (14)
  - ABDOMINAL DISTENSION [None]
  - ANOREXIA [None]
  - CHILLS [None]
  - ENERGY INCREASED [None]
  - ERUCTATION [None]
  - FATIGUE [None]
  - FEELING ABNORMAL [None]
  - FLATULENCE [None]
  - INFLUENZA [None]
  - NAUSEA [None]
  - SINUS HEADACHE [None]
  - VIRAL INFECTION [None]
  - VOMITING [None]
  - WEIGHT DECREASED [None]
